FAERS Safety Report 7201092-7 (Version None)
Quarter: 2010Q4

REPORT INFORMATION
  Report Type: 
  Country: None (occurrence: None)
  Receive Date: 20101229
  Receipt Date: 20101220
  Transmission Date: 20110411
  Serious: No
  Sender: FDA-Public Use
  Company Number: US-BIOGENIDEC-2010BI041136

PATIENT
  Sex: Female

DRUGS (1)
  1. TYSABRI [Suspect]
     Indication: MULTIPLE SCLEROSIS
     Route: 042
     Dates: start: 20101025, end: 20101207

REACTIONS (4)
  - ANGIOTENSIN CONVERTING ENZYME INCREASED [None]
  - HEADACHE [None]
  - LYMPHADENOPATHY [None]
  - WHITE BLOOD CELL COUNT INCREASED [None]
